FAERS Safety Report 8902151 (Version 1)
Quarter: 2012Q4

REPORT INFORMATION
  Report Type: 
  Country: US (occurrence: US)
  Receive Date: 20121112
  Receipt Date: 20121112
  Transmission Date: 20130627
  Serious: Yes (Hospitalization, Other)
  Sender: FDA-Public Use
  Company Number: US-SANOFI-AVENTIS-2012SA080540

PATIENT
  Age: 34 Year
  Sex: Male

DRUGS (3)
  1. ZOLPIDEM [Suspect]
     Indication: CIRCADIAN DYSRHYTHMIA
     Dosage: dose: 100-150 mg immediate release daily
     Route: 065
  2. ZOLPIDEM [Suspect]
     Indication: CIRCADIAN DYSRHYTHMIA
     Route: 065
  3. LITHIUM [Concomitant]
     Indication: BIPOLAR DISORDER

REACTIONS (7)
  - Drug dependence [Unknown]
  - Vision blurred [Unknown]
  - Drug withdrawal syndrome [Unknown]
  - Drug withdrawal headache [Unknown]
  - Drug withdrawal convulsions [Unknown]
  - Anxiety [Unknown]
  - Feeling jittery [Unknown]
